FAERS Safety Report 19855076 (Version 1)
Quarter: 2021Q3

REPORT INFORMATION
  Report Type: Spontaneous
  Country: CA (occurrence: CA)
  Receive Date: 20210918
  Receipt Date: 20210918
  Transmission Date: 20211014
  Serious: Yes (Other)
  Sender: FDA-Public Use
  Company Number: None

PATIENT
  Age: 39 Year
  Sex: Female
  Weight: 67.5 kg

DRUGS (2)
  1. PREDNISONE. [Suspect]
     Active Substance: PREDNISONE
  2. BETAMETHASONE. [Suspect]
     Active Substance: BETAMETHASONE
     Indication: RASH
     Dates: start: 20160605, end: 20190422

REACTIONS (11)
  - Steroid withdrawal syndrome [None]
  - Skin weeping [None]
  - Lymphadenopathy [None]
  - Suicidal ideation [None]
  - Condition aggravated [None]
  - Rash [None]
  - Alopecia [None]
  - Product use complaint [None]
  - Pruritus [None]
  - Sleep deficit [None]
  - Skin exfoliation [None]

NARRATIVE: CASE EVENT DATE: 20190909
